FAERS Safety Report 11225323 (Version 2)
Quarter: 2015Q3

REPORT INFORMATION
  Report Type: Spontaneous
  Country: SG (occurrence: SG)
  Receive Date: 20150629
  Receipt Date: 20150708
  Transmission Date: 20151125
  Serious: Yes (Hospitalization, Other)
  Sender: FDA-Public Use
  Company Number: SG-BAYER-2015-361863

PATIENT
  Sex: Female

DRUGS (1)
  1. YASMIN [Suspect]
     Active Substance: DROSPIRENONE\ETHINYL ESTRADIOL
     Indication: CONTRACEPTION
     Dosage: UNK
     Route: 048
     Dates: start: 2011

REACTIONS (17)
  - Weight increased [Not Recovered/Not Resolved]
  - Emotional disorder [None]
  - Suicide attempt [None]
  - Depression suicidal [None]
  - Hormone level abnormal [None]
  - Fatigue [None]
  - Hepatic neoplasm [Not Recovered/Not Resolved]
  - Infection susceptibility increased [None]
  - Fat intolerance [Not Recovered/Not Resolved]
  - Aggression [None]
  - Alcohol intolerance [Not Recovered/Not Resolved]
  - Amenorrhoea [None]
  - Abdominal pain lower [Not Recovered/Not Resolved]
  - Menstruation irregular [None]
  - Mood swings [None]
  - Chloasma [None]
  - Varicose vein [None]
